FAERS Safety Report 19946312 (Version 2)
Quarter: 2021Q4

REPORT INFORMATION
  Report Type: Report from Study
  Country: GB (occurrence: GB)
  Receive Date: 20211012
  Receipt Date: 20211209
  Transmission Date: 20220304
  Serious: Yes (Hospitalization, Other)
  Sender: FDA-Public Use
  Company Number: GB-UCBSA-2021031928

PATIENT
  Sex: Female

DRUGS (2)
  1. CERTOLIZUMAB PEGOL [Suspect]
     Active Substance: CERTOLIZUMAB PEGOL
     Indication: Axial spondyloarthritis
     Dosage: 400 MILLIGRAM, EV 2 WEEKS(QOW)
     Route: 058
     Dates: start: 20210614
  2. CERTOLIZUMAB PEGOL [Suspect]
     Active Substance: CERTOLIZUMAB PEGOL
     Dosage: 200 MILLIGRAM, EV 2 WEEKS(QOW)
     Route: 058
     Dates: start: 202107

REACTIONS (11)
  - Gastrointestinal surgery [Unknown]
  - Sepsis [Unknown]
  - Crohn^s disease [Not Recovered/Not Resolved]
  - Back pain [Recovering/Resolving]
  - Stress [Not Recovered/Not Resolved]
  - Pain [Unknown]
  - Injection site bruising [Unknown]
  - Musculoskeletal stiffness [Recovering/Resolving]
  - Injection site pain [Unknown]
  - Hernia pain [Unknown]
  - Arthralgia [Unknown]

NARRATIVE: CASE EVENT DATE: 20210101
